FAERS Safety Report 6939580-0 (Version None)
Quarter: 2010Q3

REPORT INFORMATION
  Report Type: 
  Country: None (occurrence: None)
  Receive Date: 20100820
  Receipt Date: 20100427
  Transmission Date: 20110219
  Serious: Yes (Death)
  Sender: FDA-Public Use
  Company Number: 1000015804

PATIENT
  Age: 79 Year
  Sex: Female

DRUGS (4)
  1. MEMANTINE HCL [Suspect]
     Indication: DEMENTIA ALZHEIMER'S TYPE
     Dosage: 5MG (5MG, 1 IN 1 D) ORAL, 20MG (10MG, 2 IN 1D), ORAL
     Route: 048
     Dates: start: 20090429
  2. SPIRONOLACTONE [Suspect]
  3. CEDRINA (TABLETS) [Concomitant]
  4. SERTRALINE HYDROCHLORIDE [Concomitant]

REACTIONS (3)
  - CHOLELITHIASIS [None]
  - HEPATIC ENZYME INCREASED [None]
  - JAUNDICE [None]
